FAERS Safety Report 14204461 (Version 1)
Quarter: 2017Q4

REPORT INFORMATION
  Report Type: Spontaneous
  Country: US (occurrence: US)
  Receive Date: 20171114
  Receipt Date: 20171114
  Transmission Date: 20180321
  Serious: Yes (Death)
  Sender: FDA-Public Use
  Company Number: None

PATIENT
  Age: 32 Year
  Sex: Male
  Weight: 99 kg

DRUGS (7)
  1. VISTARIL [Concomitant]
     Active Substance: HYDROXYZINE PAMOATE
  2. TYLENOL [Concomitant]
     Active Substance: ACETAMINOPHEN
  3. MILK OF MAGNISUM [Concomitant]
  4. INVEGA SUSTENNA [Suspect]
     Active Substance: PALIPERIDONE PALMITATE
     Indication: SCHIZOPHRENIA
     Dosage: ?          QUANTITY:1 INJECTION(S);OTHER FREQUENCY:1;?
     Route: 030
  5. SLEEP AID [Concomitant]
     Active Substance: DIPHENHYDRAMINE HYDROCHLORIDE\DOXYLAMINE SUCCINATE
  6. MULTI VITAMIN [Concomitant]
     Active Substance: VITAMINS
  7. EFFEXOR [Concomitant]
     Active Substance: VENLAFAXINE HYDROCHLORIDE

REACTIONS (2)
  - Diabetes mellitus [None]
  - Hypertension [None]

NARRATIVE: CASE EVENT DATE: 20170701
